FAERS Safety Report 17500189 (Version 1)
Quarter: 2020Q1

REPORT INFORMATION
  Report Type: Report from Study
  Country: US (occurrence: US)
  Receive Date: 20200305
  Receipt Date: 20200305
  Transmission Date: 20200409
  Serious: Yes (Other)
  Sender: FDA-Public Use
  Company Number: US-TAIHO ONCOLOGY  INC-EU-2020-00694

PATIENT
  Sex: Male

DRUGS (9)
  1. LONSURF [Suspect]
     Active Substance: TIPIRACIL HYDROCHLORIDE\TRIFLURIDINE
     Indication: COLON CANCER
     Dosage: CURRENT CYCLE UNKNOWN
     Route: 048
     Dates: start: 20200212, end: 20200226
  2. ALLOPURINOL. [Concomitant]
     Active Substance: ALLOPURINOL
  3. CARVEDILOL. [Concomitant]
     Active Substance: CARVEDILOL
  4. BENAZEPRIL [Concomitant]
     Active Substance: BENAZEPRIL HYDROCHLORIDE
  5. FINASTERIDE. [Concomitant]
     Active Substance: FINASTERIDE
  6. AMLODIPINE [Concomitant]
     Active Substance: AMLODIPINE BESYLATE
  7. XARELTO [Concomitant]
     Active Substance: RIVAROXABAN
  8. LATANOPROST. [Concomitant]
     Active Substance: LATANOPROST
  9. TAMSULOSIN [Concomitant]
     Active Substance: TAMSULOSIN

REACTIONS (4)
  - Haemorrhage [Unknown]
  - Disease progression [Unknown]
  - Haematemesis [Unknown]
  - Cytopenia [Unknown]
